FAERS Safety Report 9697528 (Version 3)
Quarter: 2014Q3

REPORT INFORMATION
  Report Type: Report from Study
  Country: SK (occurrence: SK)
  Receive Date: 20131120
  Receipt Date: 20140926
  Transmission Date: 20150326
  Serious: Yes (Death, Hospitalization, Other)
  Sender: FDA-Public Use
  Company Number: SK-ROCHE-1304764

PATIENT
  Age: 69 Year
  Sex: Male
  Weight: 70 kg

DRUGS (8)
  1. TALLITON [Concomitant]
     Route: 065
     Dates: start: 20090712
  2. RANIBIZUMAB [Suspect]
     Active Substance: RANIBIZUMAB
     Route: 050
     Dates: start: 20130722
  3. ASPIRIN PROTECT [Concomitant]
     Active Substance: ASPIRIN
     Route: 065
     Dates: start: 20050510
  4. RANIBIZUMAB [Suspect]
     Active Substance: RANIBIZUMAB
     Indication: DIABETIC RETINAL OEDEMA
     Route: 050
     Dates: start: 20130617
  5. RANIBIZUMAB [Suspect]
     Active Substance: RANIBIZUMAB
     Route: 050
     Dates: start: 20130916, end: 20130916
  6. INSULIN [Concomitant]
     Active Substance: INSULIN NOS
     Route: 065
     Dates: start: 20030601
  7. RANIBIZUMAB [Suspect]
     Active Substance: RANIBIZUMAB
     Route: 050
     Dates: start: 20130909
  8. DIGOXIN-SPECIFIC ANTIBODY FRAGMENTS [Concomitant]
     Active Substance: DIGOXIN
     Route: 065
     Dates: start: 20050915

REACTIONS (5)
  - Renal impairment [Fatal]
  - Mineral deficiency [Fatal]
  - Inappropriate schedule of drug administration [Unknown]
  - Cardiac failure chronic [Fatal]
  - Coronary artery insufficiency [Unknown]

NARRATIVE: CASE EVENT DATE: 20130928
